FAERS Safety Report 9780893 (Version 1)
Quarter: 2013Q4

REPORT INFORMATION
  Report Type: Report from Study
  Country: CA (occurrence: CA)
  Receive Date: 20131224
  Receipt Date: 20131224
  Transmission Date: 20140711
  Serious: Yes (Other)
  Sender: FDA-Public Use
  Company Number: PHHY2013CA150973

PATIENT
  Sex: Female

DRUGS (4)
  1. ACLASTA [Suspect]
     Indication: OSTEOPOROSIS
     Dosage: UNK
     Route: 042
     Dates: start: 20100121
  2. ACLASTA [Suspect]
     Dosage: UNK
     Route: 042
     Dates: start: 20110125
  3. ACLASTA [Suspect]
     Dosage: UNK
     Route: 042
     Dates: start: 20120120
  4. ACLASTA [Suspect]
     Dosage: UNK
     Route: 042
     Dates: start: 20130121

REACTIONS (1)
  - Lung neoplasm malignant [Unknown]
